FAERS Safety Report 23581956 (Version 2)
Quarter: 2024Q1

REPORT INFORMATION
  Report Type: Spontaneous
  Country: IT (occurrence: IT)
  Receive Date: 20240229
  Receipt Date: 20240312
  Transmission Date: 20240409
  Serious: Yes (Death, Hospitalization, Other)
  Sender: FDA-Public Use
  Company Number: IT-GILEAD-2024-0663722

PATIENT
  Age: 50 Year
  Sex: Female

DRUGS (1)
  1. TRODELVY [Suspect]
     Active Substance: SACITUZUMAB GOVITECAN-HZIY
     Indication: Product used for unknown indication
     Dosage: 10 MG/KG D1, D8 Q21
     Route: 065
     Dates: start: 20240126

REACTIONS (10)
  - Neutropenic colitis [Fatal]
  - Dysphagia [Unknown]
  - Cough [Unknown]
  - Haemorrhoids [Unknown]
  - Pelvic pain [Unknown]
  - Diarrhoea [Unknown]
  - Constipation [Unknown]
  - Abdominal pain [Unknown]
  - Candida infection [Unknown]
  - Perineal pain [Unknown]

NARRATIVE: CASE EVENT DATE: 20240206
